FAERS Safety Report 25175546 (Version 1)
Quarter: 2025Q2

REPORT INFORMATION
  Report Type: Spontaneous
  Country: US (occurrence: US)
  Receive Date: 20250408
  Receipt Date: 20250408
  Transmission Date: 20250716
  Serious: Yes (Other)
  Sender: MERCK SHARP AND DOHME
  Company Number: US-009507513-2274234

PATIENT
  Sex: Female

DRUGS (7)
  1. WINREVAIR [Suspect]
     Active Substance: SOTATERCEPT-CSRK
  2. WINREVAIR [Suspect]
     Active Substance: SOTATERCEPT-CSRK
  3. WINREVAIR [Suspect]
     Active Substance: SOTATERCEPT-CSRK
  4. WINREVAIR [Suspect]
     Active Substance: SOTATERCEPT-CSRK
  5. TREPROSTINIL [Suspect]
     Active Substance: TREPROSTINIL
  6. TREPROSTINIL [Suspect]
     Active Substance: TREPROSTINIL
  7. OPSUMIT [Suspect]
     Active Substance: MACITENTAN

REACTIONS (4)
  - Thrombosis [Unknown]
  - Dyspnoea [Unknown]
  - Dyspnoea [Unknown]
  - Therapy interrupted [Unknown]
